FAERS Safety Report 24029010 (Version 1)
Quarter: 2024Q2

REPORT INFORMATION
  Report Type: Spontaneous
  Country: US (occurrence: None)
  Receive Date: 20240627
  Receipt Date: 20240627
  Transmission Date: 20240715
  Serious: Yes (Hospitalization, Other)
  Sender: FDA-Public Use
  Company Number: None

PATIENT
  Age: 47 Year
  Sex: Female

DRUGS (2)
  1. OZEMPIC [Suspect]
     Active Substance: SEMAGLUTIDE
     Indication: Glucose tolerance impaired
     Dates: start: 20230430, end: 20240425
  2. OZEMPIC [Suspect]
     Active Substance: SEMAGLUTIDE
     Indication: Glycosylated haemoglobin increased

REACTIONS (3)
  - Abdominal pain [None]
  - Pancreatic duct dilatation [None]
  - Pancreatitis [None]

NARRATIVE: CASE EVENT DATE: 20240318
